FAERS Safety Report 19467277 (Version 1)
Quarter: 2021Q2

REPORT INFORMATION
  Report Type: Spontaneous
  Country: US (occurrence: US)
  Receive Date: 20210626
  Receipt Date: 20210626
  Transmission Date: 20210717
  Serious: No
  Sender: FDA-Public Use
  Company Number: None

PATIENT
  Age: 72 Year
  Sex: Male
  Weight: 81.7 kg

DRUGS (16)
  1. ATORVASTATIN CALCIUM. [Concomitant]
     Active Substance: ATORVASTATIN CALCIUM
  2. CLOTRIMAZOLE AND BETAMETHASONE DIPROPIONATE [Concomitant]
     Active Substance: BETAMETHASONE\BETAMETHASONE DIPROPIONATE\CLOTRIMAZOLE
  3. MULTIVITAMIN ADULT [Concomitant]
  4. VIREAD [Concomitant]
     Active Substance: TENOFOVIR DISOPROXIL FUMARATE
  5. LANTUS SOLOSTAR [Concomitant]
     Active Substance: INSULIN GLARGINE
  6. CAPECITABINE. [Suspect]
     Active Substance: CAPECITABINE
     Indication: CHOLANGIOCARCINOMA
     Route: 048
     Dates: start: 20210514
  7. NOVOLOG [Concomitant]
     Active Substance: INSULIN ASPART
  8. VANCOMYCIN HCL IN DEXTROSE [Concomitant]
  9. LORAZEPAM. [Concomitant]
     Active Substance: LORAZEPAM
  10. METAMUCIL [Concomitant]
     Active Substance: PLANTAGO SEED
  11. MESALAMINE ER [Concomitant]
     Active Substance: MESALAMINE
  12. AVAPRO [Concomitant]
     Active Substance: IRBESARTAN
  13. CLONAZEPAM. [Concomitant]
     Active Substance: CLONAZEPAM
  14. ASPIRIN 81 [Concomitant]
     Active Substance: ASPIRIN
  15. ONDANSETRON HCL [Concomitant]
     Active Substance: ONDANSETRON HYDROCHLORIDE
  16. ZOSYN [Concomitant]
     Active Substance: PIPERACILLIN SODIUM\TAZOBACTAM SODIUM

REACTIONS (2)
  - Fatigue [None]
  - Decreased appetite [None]

NARRATIVE: CASE EVENT DATE: 20210601
